FAERS Safety Report 14224004 (Version 1)
Quarter: 2017Q4

REPORT INFORMATION
  Report Type: Spontaneous
  Country: IT (occurrence: IT)
  Receive Date: 20171123
  Receipt Date: 20171123
  Transmission Date: 20180321
  Serious: Yes (Disabling)
  Sender: FDA-Public Use
  Company Number: None

PATIENT
  Sex: Female
  Weight: 60 kg

DRUGS (13)
  1. BENTRLAN [Concomitant]
  2. MEDROL [Concomitant]
     Active Substance: METHYLPREDNISOLONE
  3. ATARAX [Concomitant]
     Active Substance: HYDROXYZINE HYDROCHLORIDE
  4. DELTACORTENE [Concomitant]
     Active Substance: PREDNISONE
  5. GENTALYN [Concomitant]
     Active Substance: GENTAMICIN SULFATE
  6. GENTALYN BETA [Concomitant]
  7. ADVANTAN [Concomitant]
     Active Substance: METHYLPREDNISOLONE ACEPONATE
  8. PROTOPIC [Suspect]
     Active Substance: TACROLIMUS
     Indication: ECZEMA
     Dosage: ?          QUANTITY:1 1 APPL. OF OINTMEN;?
     Route: 061
  9. FUCICORT [Concomitant]
     Active Substance: BETAMETHASONE VALERATE\FUSIDIC ACID
  10. LOCOIDON [Concomitant]
     Active Substance: HYDROCORTISONE BUTYRATE
  11. FLUBASON [Concomitant]
     Active Substance: DESOXIMETASONE
  12. ELOCON [Concomitant]
     Active Substance: MOMETASONE FUROATE
  13. ZIRTEC [Concomitant]
     Active Substance: CETIRIZINE HYDROCHLORIDE

REACTIONS (1)
  - Eczema [None]
